FAERS Safety Report 5247307-6 (Version None)
Quarter: 2007Q1

REPORT INFORMATION
  Report Type: 
  Country: None (occurrence: None)
  Receive Date: 20070223
  Receipt Date: 20070223
  Transmission Date: 20070707
  Serious: Yes (Hospitalization)
  Sender: FDA-Public Use
  Company Number: None

PATIENT
  Age: 65 Year
  Sex: Male
  Weight: 80.2867 kg

DRUGS (6)
  1. SIMVASTATIN TABLET [Suspect]
     Indication: HYPERLIPIDAEMIA
     Dosage: 40MG  DAILY  ORALLY
     Route: 048
     Dates: start: 20041101, end: 20070101
  2. GEMFIBROZIL [Suspect]
     Indication: HYPERTRIGLYCERIDAEMIA
     Dosage: 600MG  TWICE DAILY  ORALLY
     Route: 048
     Dates: start: 20041001, end: 20070101
  3. DILTIAZEM [Concomitant]
  4. LISINOPRIL [Concomitant]
  5. METOPROLOL TARTRATE [Concomitant]
  6. ASPIRIN [Concomitant]

REACTIONS (10)
  - ACUTE PRERENAL FAILURE [None]
  - DIALYSIS [None]
  - GAIT DISTURBANCE [None]
  - GENERAL PHYSICAL HEALTH DETERIORATION [None]
  - METABOLIC ACIDOSIS [None]
  - PNEUMONIA [None]
  - RESPIRATORY FAILURE [None]
  - RHABDOMYOLYSIS [None]
  - SEPSIS [None]
  - SHOCK [None]
